FAERS Safety Report 19256425 (Version 4)
Quarter: 2021Q3

REPORT INFORMATION
  Report Type: Spontaneous
  Country: JP (occurrence: JP)
  Receive Date: 20210514
  Receipt Date: 20210712
  Transmission Date: 20211014
  Serious: Yes (Life-Threatening, Disabling, Other)
  Sender: FDA-Public Use
  Company Number: JP-TAKEDA-2021TJP023962

PATIENT
  Age: 39 Year
  Sex: Female

DRUGS (8)
  1. TRINTELLIX [Suspect]
     Active Substance: VORTIOXETINE HYDROBROMIDE
     Indication: DEPRESSION
     Dosage: 10 MILLIGRAM, QD
     Route: 048
     Dates: start: 20210430
  2. RISPERDAL [Concomitant]
     Active Substance: RISPERIDONE
     Dosage: UNK
     Route: 065
  3. QUETIAPINE FUMARATE. [Concomitant]
     Active Substance: QUETIAPINE FUMARATE
     Dosage: UNK
     Route: 065
  4. RIZE [Concomitant]
     Active Substance: CLOTIAZEPAM
     Dosage: UNK
     Route: 065
  5. LORAZEPAM. [Concomitant]
     Active Substance: LORAZEPAM
     Indication: ANXIETY
     Dosage: 0.5 MILLIGRAM, QD
     Route: 048
     Dates: start: 20210415
  6. MIRTAZAPINE. [Suspect]
     Active Substance: MIRTAZAPINE
     Indication: DEPRESSIVE SYMPTOM
     Dosage: 15 MILLIGRAM, QD
     Route: 048
     Dates: start: 20210415
  7. OLANZAPINE. [Concomitant]
     Active Substance: OLANZAPINE
     Indication: DEPRESSIVE SYMPTOM
     Dosage: 2.5 MILLIGRAM, QD
     Route: 048
     Dates: start: 20210415
  8. ZOLPIDEM TARTRATE. [Concomitant]
     Active Substance: ZOLPIDEM TARTRATE
     Indication: INSOMNIA
     Dosage: 10 MILLIGRAM, QD
     Route: 048
     Dates: start: 20210430

REACTIONS (5)
  - Shock haemorrhagic [Unknown]
  - Subarachnoid haemorrhage [Unknown]
  - Limb traumatic amputation [Unknown]
  - Suicide attempt [Unknown]
  - Humerus fracture [Unknown]

NARRATIVE: CASE EVENT DATE: 20210508
